FAERS Safety Report 8601053-7 (Version None)
Quarter: 2012Q3

REPORT INFORMATION
  Report Type: 
  Country: None (occurrence: None)
  Receive Date: 20120806
  Receipt Date: 20120727
  Transmission Date: 20120928
  Serious: Yes (Other)
  Sender: FDA-Public Use
  Company Number: AUR-APL-2012-03288

PATIENT
  Age: 53 Year
  Sex: Female

DRUGS (1)
  1. SIMVASTATIN [Suspect]
     Indication: BLOOD CHOLESTEROL INCREASED
     Dosage: EVENING (20 MG,1 IN 1 D),ORAL
     Route: 048

REACTIONS (3)
  - MUSCLE SPASMS [None]
  - MUSCLE TIGHTNESS [None]
  - WEIGHT DECREASED [None]
